FAERS Safety Report 8139612-0 (Version None)
Quarter: 2012Q1

REPORT INFORMATION
  Report Type: 
  Country: None (occurrence: None)
  Receive Date: 20120215
  Receipt Date: 20120201
  Transmission Date: 20120608
  Serious: Yes (Other)
  Sender: FDA-Public Use
  Company Number: PHHY2011BR01489

PATIENT
  Sex: Male
  Weight: 88 kg

DRUGS (3)
  1. CLOZAPINE [Suspect]
     Dosage: 100 MG, 3 AND 3/4 TH TABLETS
     Route: 048
     Dates: start: 20110105
  2. CLOZAPINE [Suspect]
     Dosage: 100 MG, 3 TABLETS
     Route: 048
  3. CLOZAPINE [Suspect]
     Indication: SCHIZOPHRENIA
     Dosage: 100 MG, 4 TABLETS, DAILY
     Route: 048

REACTIONS (10)
  - WHITE BLOOD CELL COUNT DECREASED [None]
  - RED BLOOD CELL COUNT DECREASED [None]
  - BLOOD CREATINE PHOSPHOKINASE INCREASED [None]
  - BLOOD GLUCOSE INCREASED [None]
  - ASTHENIA [None]
  - GLYCOSYLATED HAEMOGLOBIN INCREASED [None]
  - BLOOD TRIGLYCERIDES INCREASED [None]
  - WEIGHT DECREASED [None]
  - PLATELET COUNT DECREASED [None]
  - PALLOR [None]
